FAERS Safety Report 24606516 (Version 1)
Quarter: 2024Q4

REPORT INFORMATION
  Report Type: Other
  Country: JP (occurrence: JP)
  Receive Date: 20241112
  Receipt Date: 20241112
  Transmission Date: 20250115
  Serious: Yes (Other)
  Sender: Kanchan Healthcare
  Company Number: JP-Kanchan Healthcare INC-2164812

PATIENT
  Age: 73 Year
  Sex: Male

DRUGS (7)
  1. DEXAMETHASONE [Suspect]
     Active Substance: DEXAMETHASONE
     Indication: Diffuse large B-cell lymphoma
  2. GEMCITABINE [Suspect]
     Active Substance: GEMCITABINE
  3. PREGABALIN [Concomitant]
     Active Substance: PREGABALIN
  4. TAPENTADOL [Concomitant]
     Active Substance: TAPENTADOL
  5. OXYCODONE [Concomitant]
     Active Substance: OXYCODONE
  6. RITUXIMAB [Suspect]
     Active Substance: RITUXIMAB
  7. CARBOPLATIN [Suspect]
     Active Substance: CARBOPLATIN

REACTIONS (2)
  - Myelosuppression [Recovering/Resolving]
  - Delirium [Recovering/Resolving]
